FAERS Safety Report 24963848 (Version 1)
Quarter: 2025Q1

REPORT INFORMATION
  Report Type: Other
  Country: PT (occurrence: PT)
  Receive Date: 20250213
  Receipt Date: 20250213
  Transmission Date: 20250408
  Serious: Yes (Other)
  Sender: CREEKWOOD PHARMACEUTICALS LLC
  Company Number: PT-Creekwood Pharmaceuticals LLC-2171060

PATIENT
  Age: 71 Year
  Sex: Male

DRUGS (2)
  1. HYDROXYCHLOROQUINE SULFATE [Suspect]
     Active Substance: HYDROXYCHLOROQUINE SULFATE
     Indication: Arthralgia
  2. DOLUTEGRAVIR SODIUM\RILPIVIRINE HYDROCHLORIDE [Concomitant]
     Active Substance: DOLUTEGRAVIR SODIUM\RILPIVIRINE HYDROCHLORIDE

REACTIONS (1)
  - Acute febrile neutrophilic dermatosis [Recovered/Resolved]
